FAERS Safety Report 5640940-9 (Version None)
Quarter: 2008Q1

REPORT INFORMATION
  Report Type: 
  Country: None (occurrence: None)
  Receive Date: 20080227
  Receipt Date: 20080212
  Transmission Date: 20080703
  Serious: Yes (Other)
  Sender: FDA-Public Use
  Company Number: AU-MERCK-0802AUS00214

PATIENT
  Age: 76 Year
  Sex: Female

DRUGS (3)
  1. FOSAMAX [Suspect]
     Route: 048
     Dates: start: 20050101, end: 20050101
  2. CANDESARTAN CILEXETIL [Concomitant]
     Indication: CARDIAC DISORDER
     Route: 065
  3. CLOPIDOGREL BISULFATE [Concomitant]
     Indication: ANTICOAGULANT THERAPY
     Route: 065

REACTIONS (3)
  - DIZZINESS [None]
  - HIP FRACTURE [None]
  - NAUSEA [None]
